FAERS Safety Report 12497848 (Version 1)
Quarter: 2016Q2

REPORT INFORMATION
  Report Type: Other
  Country: GB (occurrence: GB)
  Receive Date: 20160625
  Receipt Date: 20160625
  Transmission Date: 20160815
  Serious: Yes (Other)
  Sender: FDA-Public Use
  Company Number: GB-APOTEX-2016AP009395

PATIENT

DRUGS (10)
  1. PAROXETINE. [Suspect]
     Active Substance: PAROXETINE
     Dosage: 20 MG, DAILY
     Route: 065
     Dates: start: 20030429, end: 20070529
  2. PAROXETINE. [Suspect]
     Active Substance: PAROXETINE
     Indication: DEPRESSION
     Dosage: 20 MG, DAILY
     Route: 065
     Dates: start: 20010730
  3. PAROXETINE. [Suspect]
     Active Substance: PAROXETINE
     Dosage: 40 MG, DAILY
     Route: 065
     Dates: end: 2003
  4. SODIUM VALPROATE [Concomitant]
     Active Substance: VALPROATE SODIUM
     Indication: PRODUCT USED FOR UNKNOWN INDICATION
     Dosage: UNK
     Route: 065
     Dates: start: 20031103
  5. PAROXETINE. [Suspect]
     Active Substance: PAROXETINE
     Indication: OBSESSIVE-COMPULSIVE DISORDER
     Dosage: 30 MG, DAILY
     Route: 065
     Dates: end: 2003
  6. PAROXETINE. [Suspect]
     Active Substance: PAROXETINE
     Dosage: 10 MG, UNK
     Route: 065
  7. PAROXETINE. [Suspect]
     Active Substance: PAROXETINE
     Dosage: 4 MG, UNK
     Route: 065
  8. PAROXETINE. [Suspect]
     Active Substance: PAROXETINE
     Indication: DEPRESSION
     Dosage: 20MG/10ML SUSPENSION DAILY
     Route: 065
     Dates: start: 20081115
  9. PAROXETINE. [Suspect]
     Active Substance: PAROXETINE
     Indication: OBSESSIVE-COMPULSIVE DISORDER
  10. PROZAC [Concomitant]
     Active Substance: FLUOXETINE HYDROCHLORIDE
     Indication: PRODUCT USED FOR UNKNOWN INDICATION
     Dosage: UNK
     Route: 065
     Dates: start: 20050218

REACTIONS (23)
  - Condition aggravated [Unknown]
  - Dizziness [Unknown]
  - Fatigue [Unknown]
  - Paranoia [Unknown]
  - Agitation [Unknown]
  - Confusional state [Unknown]
  - Mood swings [Unknown]
  - Obsessive-compulsive disorder [Unknown]
  - Lethargy [Unknown]
  - Muscle twitching [Unknown]
  - Sensory disturbance [Unknown]
  - Aggression [Unknown]
  - Nervousness [Unknown]
  - Suicidal ideation [Unknown]
  - Weight increased [Unknown]
  - Tremor [Unknown]
  - Anxiety [Unknown]
  - Drug withdrawal syndrome [Unknown]
  - Self-injurious ideation [Unknown]
  - Depression [Unknown]
  - Intentional self-injury [Unknown]
  - Insomnia [Unknown]
  - Influenza like illness [Unknown]

NARRATIVE: CASE EVENT DATE: 2003
